FAERS Safety Report 9424527 (Version 1)
Quarter: 2013Q3

REPORT INFORMATION
  Report Type: Spontaneous
  Country: US (occurrence: None)
  Receive Date: 20130725
  Receipt Date: 20130725
  Transmission Date: 20140515
  Serious: Yes (Other)
  Sender: FDA-Public Use
  Company Number: EUS-2013-00421

PATIENT
  Sex: Female

DRUGS (1)
  1. ERWINAZE (ASPARAGINASE) [Suspect]
     Indication: PRECURSOR T-LYMPHOBLASTIC LYMPHOMA/LEUKAEMIA

REACTIONS (1)
  - Vomiting [None]
